FAERS Safety Report 7018930-3 (Version None)
Quarter: 2010Q3

REPORT INFORMATION
  Report Type: 
  Country: None (occurrence: None)
  Receive Date: 20100928
  Receipt Date: 20100914
  Transmission Date: 20110219
  Serious: Yes (Hospitalization)
  Sender: FDA-Public Use
  Company Number: US-MYLANLABS-2010S1016779

PATIENT
  Age: 48 Year
  Sex: Female

DRUGS (7)
  1. CLONAZEPAM [Suspect]
     Indication: MYOCLONUS
     Route: 048
  2. FELODIPINE [Concomitant]
     Route: 065
  3. ALUMINUM HYDROXIDE GEL [Concomitant]
     Route: 065
  4. CALCIUM CARBONATE [Concomitant]
     Route: 065
  5. LABETALOL [Concomitant]
     Route: 065
  6. FOLIC ACID [Concomitant]
     Route: 065
  7. VITAMIN B COMPLEX CAP [Concomitant]
     Dosage: DAILY
     Route: 065

REACTIONS (1)
  - PANCYTOPENIA [None]
